FAERS Safety Report 4572025-7 (Version None)
Quarter: 2005Q1

REPORT INFORMATION
  Report Type: 
  Country: None (occurrence: None)
  Receive Date: 20050203
  Receipt Date: 20050203
  Transmission Date: 20050727
  Serious: Yes (Other)
  Sender: FDA-Public Use
  Company Number: None

PATIENT
  Age: 45 Year
  Sex: Male

DRUGS (2)
  1. LIDOCAINE 1% [Suspect]
     Indication: ANAESTHESIA
     Dosage: 130 MG BY INHALATION/GARGLE
     Route: 048
  2. LIDOCAINE 1% [Suspect]
     Indication: BRONCHOSCOPY
     Dosage: 130 MG BY INHALATION/GARGLE
     Route: 048

REACTIONS (2)
  - NODAL RHYTHM [None]
  - SICK SINUS SYNDROME [None]
